FAERS Safety Report 4835332-6 (Version None)
Quarter: 2005Q4

REPORT INFORMATION
  Report Type: 
  Country: None (occurrence: None)
  Receive Date: 20051114
  Receipt Date: 20051108
  Transmission Date: 20060501
  Serious: Yes (Life-Threatening, Other)
  Sender: FDA-Public Use
  Company Number: HQWYE635026SEP05

PATIENT
  Age: 34 Year
  Sex: Male
  Weight: 77.18 kg

DRUGS (5)
  1. ADVIL [Suspect]
     Indication: DRUG USE FOR UNKNOWN INDICATION
     Dosage: 400 MG 3X PER 1 DAY, ORAL
     Route: 048
     Dates: start: 20050920, end: 20050921
  2. ADVIL [Suspect]
     Indication: DRUG USE FOR UNKNOWN INDICATION
     Dosage: 400 MG 3X PER 1 DAY, ORAL
     Route: 048
     Dates: start: 20050919
  3. NYQUIL (DEXTROMETHORPHAN [Concomitant]
  4. HYUDROBROMIDE/DOXYLAMINE SUCCINATE/EPHEDRINE [Concomitant]
  5. SULFATE/ETHANOL/PARACETAMOL) [Concomitant]

REACTIONS (7)
  - BLOOD BLISTER [None]
  - HYPERSENSITIVITY [None]
  - JOINT SWELLING [None]
  - OEDEMA PERIPHERAL [None]
  - PHARYNGEAL OEDEMA [None]
  - PYREXIA [None]
  - URTICARIA [None]
